FAERS Safety Report 6422163-9 (Version None)
Quarter: 2009Q4

REPORT INFORMATION
  Report Type: 
  Country: None (occurrence: None)
  Receive Date: 20091029
  Receipt Date: 20091029
  Transmission Date: 20100525
  Serious: Yes (Life-Threatening)
  Sender: FDA-Public Use
  Company Number: None

PATIENT
  Age: 52 Year
  Sex: Female
  Weight: 68.9467 kg

DRUGS (1)
  1. LISINOPRIL AND HYDROCHLOROTHIAZIDE [Suspect]
     Indication: HYPERTENSION
     Dosage: 10-12.5 1 A DAY ORALLY
     Route: 048
     Dates: start: 20090807, end: 20090810

REACTIONS (9)
  - BREATH ODOUR [None]
  - COUGH [None]
  - DIARRHOEA [None]
  - DYSPNOEA [None]
  - FEELING ABNORMAL [None]
  - LIP SWELLING [None]
  - RASH [None]
  - RESPIRATION ABNORMAL [None]
  - URTICARIA [None]
